FAERS Safety Report 6892817-9 (Version None)
Quarter: 2010Q3

REPORT INFORMATION
  Report Type: 
  Country: None (occurrence: None)
  Receive Date: 20100731
  Receipt Date: 20081113
  Transmission Date: 20110219
  Serious: Yes (Other)
  Sender: FDA-Public Use
  Company Number: US-PFIZER INC-2008083056

PATIENT
  Age: 56 Year
  Sex: Female

DRUGS (3)
  1. METRONIDAZOLE [Suspect]
     Indication: ABSCESS
     Route: 048
     Dates: start: 20080901
  2. ALDARA [Suspect]
     Indication: BASAL CELL CARCINOMA
     Dosage: FREQUENCY: 5XW
     Route: 061
     Dates: start: 20080801
  3. CHEMOTHERAPY NOS [Suspect]
     Indication: COLON CANCER
     Dates: start: 20080101

REACTIONS (9)
  - APPLICATION SITE DISCHARGE [None]
  - APPLICATION SITE REACTION [None]
  - BLISTER [None]
  - ERYTHEMA [None]
  - HAEMORRHAGE [None]
  - NAUSEA [None]
  - RASH PUSTULAR [None]
  - TUMOUR MARKER INCREASED [None]
  - WHITE BLOOD CELL COUNT DECREASED [None]
